FAERS Safety Report 4473779-0 (Version None)
Quarter: 2004Q3

REPORT INFORMATION
  Report Type: 
  Country: None (occurrence: None)
  Receive Date: 20040909
  Receipt Date: 20040608
  Transmission Date: 20050211
  Serious: No
  Sender: FDA-Public Use
  Company Number: A03200401818

PATIENT
  Age: 66 Year
  Sex: Female
  Weight: 78.9259 kg

DRUGS (9)
  1. ELOXATIN [Suspect]
     Indication: COLON CANCER
     Dosage: 170 MG Q2W - INTRAVENOUS NOS
     Route: 042
     Dates: start: 20040607, end: 20040607
  2. ELOXATIN [Suspect]
     Indication: METASTASES TO LIVER
     Dosage: 170 MG Q2W - INTRAVENOUS NOS
     Route: 042
     Dates: start: 20040607, end: 20040607
  3. BEVACIZUMAB [Concomitant]
  4. FLUOROURACIL [Concomitant]
  5. LEUCOVORIN CALCIUM [Concomitant]
  6. DEXAMETHASONE [Concomitant]
  7. GRANISETRON [Concomitant]
  8. CALCIUM [Concomitant]
  9. MAGNESIUM [Concomitant]

REACTIONS (2)
  - EYELID DISORDER [None]
  - VISION BLURRED [None]
